FAERS Safety Report 14785790 (Version 1)
Quarter: 2018Q2

REPORT INFORMATION
  Report Type: Spontaneous
  Country: DK (occurrence: DK)
  Receive Date: 20180420
  Receipt Date: 20180420
  Transmission Date: 20180711
  Serious: Yes (Life-Threatening, Hospitalization)
  Sender: FDA-Public Use
  Company Number: DK-TEVA-2018-DK-881267

PATIENT
  Sex: Male

DRUGS (6)
  1. SPIRIX [Concomitant]
     Active Substance: SPIRONOLACTONE
     Indication: DIURETIC THERAPY
     Dosage: STYRKE: 25 MG.
     Route: 048
     Dates: start: 20110505
  2. SIMVASTATIN ^TEVA^ [Suspect]
     Active Substance: SIMVASTATIN
     Indication: HYPERCHOLESTEROLAEMIA
     Dosage: STYRKE: 40 MG
     Route: 048
     Dates: start: 20110228
  3. CLARITHROMYCIN ^HEXAL^ [Interacting]
     Active Substance: CLARITHROMYCIN
     Indication: PNEUMONIA
     Dosage: DOSIS: 1 TABLET 2 GANGE DAGLIG, STYRKE: 500 MG.
     Route: 048
     Dates: start: 20171122
  4. GALVUS [Concomitant]
     Active Substance: VILDAGLIPTIN
     Indication: TYPE 2 DIABETES MELLITUS
     Dosage: STYRKE: 50 MG
     Route: 048
     Dates: start: 20160211
  5. ENALAPRIL HYDROCHLORTHIAZID ^TEVA^ [Concomitant]
     Indication: HYPERTENSION
     Dosage: STYRKE: 20 + 12.5 MG.
     Route: 048
     Dates: start: 20160211
  6. HJERTEMAGNYL [Concomitant]
     Active Substance: ASPIRIN\MAGNESIUM OXIDE
     Indication: ANTICOAGULANT THERAPY
     Dosage: DOSIS: FOLLOWING WRITTEN INSTRUCTIONS, STYRKE: 75 MG.
     Route: 048

REACTIONS (4)
  - Renal failure [Unknown]
  - Hypercalcaemia [Unknown]
  - Drug interaction [Unknown]
  - Rhabdomyolysis [Recovering/Resolving]

NARRATIVE: CASE EVENT DATE: 20171208
